FAERS Safety Report 5918286-0 (Version None)
Quarter: 2008Q4

REPORT INFORMATION
  Report Type: 
  Country: None (occurrence: None)
  Receive Date: 20081010
  Receipt Date: 20081002
  Transmission Date: 20090506
  Serious: Yes (Other)
  Sender: FDA-Public Use
  Company Number: CHPA2008US16490

PATIENT
  Age: 42 Month
  Sex: Male
  Weight: 15 kg

DRUGS (1)
  1. TRIAMINIC NIGHT TIME COLD + COUGH (NCH) (DIPHENHYDRAMINE, PHENYLEPHRIN [Suspect]
     Indication: COUGH
     Dosage: ORAL; 1 TSP, ORAL
     Route: 048

REACTIONS (2)
  - CONVULSION [None]
  - OVERDOSE [None]
